FAERS Safety Report 15904307 (Version 2)
Quarter: 2019Q2

REPORT INFORMATION
  Report Type: Report from Study
  Country: None (occurrence: US)
  Receive Date: 20190204
  Receipt Date: 20190526
  Transmission Date: 20190711
  Serious: Yes (Other)
  Sender: FDA-Public Use
  Company Number: US-ABBVIE-19K-163-2647078-00

PATIENT
  Sex: Female
  Weight: 108.05 kg

DRUGS (5)
  1. HUMIRA [Suspect]
     Active Substance: ADALIMUMAB
     Route: 058
     Dates: start: 201809, end: 2019
  2. HUMIRA [Suspect]
     Active Substance: ADALIMUMAB
     Indication: PRODUCT USED FOR UNKNOWN INDICATION
     Route: 058
     Dates: start: 2019
  3. CORTISONE [Concomitant]
     Active Substance: CORTISONE\HYDROCORTISONE
     Indication: FOOT DEFORMITY
  4. HUMIRA [Suspect]
     Active Substance: ADALIMUMAB
     Indication: RHEUMATOID ARTHRITIS
     Route: 058
     Dates: end: 201805
  5. HUMIRA [Suspect]
     Active Substance: ADALIMUMAB
     Route: 058
     Dates: start: 201806, end: 201808

REACTIONS (8)
  - Procedural pain [Recovered/Resolved]
  - Procedural pain [Recovered/Resolved]
  - Foot deformity [Recovering/Resolving]
  - Vein disorder [Recovered/Resolved]
  - Vein disorder [Recovered/Resolved]
  - Injection site pain [Recovered/Resolved]
  - Procedural pain [Not Recovered/Not Resolved]
  - Tenosynovitis stenosans [Unknown]

NARRATIVE: CASE EVENT DATE: 2012
